FAERS Safety Report 8052743-9 (Version None)
Quarter: 2012Q1

REPORT INFORMATION
  Report Type: 
  Country: None (occurrence: None)
  Receive Date: 20120111
  Receipt Date: 20110823
  Transmission Date: 20120608
  Serious: Yes (Life-Threatening, Other)
  Sender: FDA-Public Use
  Company Number: 2011-04544

PATIENT
  Age: 30 Year
  Sex: Female

DRUGS (2)
  1. TUBERSOL [Suspect]
     Indication: TUBERCULIN TEST
     Dosage: 5.0 UNITS, SC
     Route: 058
  2. MOXIFLOXACIN [Concomitant]

REACTIONS (6)
  - SWELLING FACE [None]
  - SWOLLEN TONGUE [None]
  - OEDEMA PERIPHERAL [None]
  - PRURITUS [None]
  - URTICARIA [None]
  - INCORRECT ROUTE OF DRUG ADMINISTRATION [None]
